FAERS Safety Report 13909229 (Version 1)
Quarter: 2017Q3

REPORT INFORMATION
  Report Type: Spontaneous
  Country: CN (occurrence: CN)
  Receive Date: 20170828
  Receipt Date: 20170828
  Transmission Date: 20171127
  Serious: Yes (Life-Threatening, Hospitalization, Other)
  Sender: FDA-Public Use
  Company Number: CN-ACCORD-057544

PATIENT
  Age: 37 Year
  Sex: Female

DRUGS (13)
  1. OXALIPLATIN. [Suspect]
     Active Substance: OXALIPLATIN
     Indication: T-CELL LYMPHOMA
     Dosage: P-GEMOX,
  2. PEGASPARGASE [Suspect]
     Active Substance: PEGASPARGASE
     Indication: T-CELL LYMPHOMA
     Dosage: PREVIOUSLY RECEIVED ASPAMET. ??PATIENT WAS SWITCHED AGAIN TO P-GEMOX,
  3. DEXAMETHASONE. [Suspect]
     Active Substance: DEXAMETHASONE
     Indication: T-CELL LYMPHOMA
     Dosage: 4 CYCLES OF VIPD,??PATIENT WAS SWITCHED,??AGAIN SWITCHED TO EPOCH 80% REGIMEN
     Dates: start: 201410
  4. CISPLATIN. [Suspect]
     Active Substance: CISPLATIN
     Indication: T-CELL LYMPHOMA
     Dosage: FOUR CYCLES OF VIPD
     Dates: start: 201410
  5. PIRARUBICIN [Suspect]
     Active Substance: PIRARUBICIN
     Indication: T-CELL LYMPHOMA
     Dosage: EPOCH 80% REGIMEN
  6. DOXORUBICIN [Suspect]
     Active Substance: DOXORUBICIN
     Indication: T-CELL LYMPHOMA
     Dosage: FOURTH CYCLE CHEMOTHERAPY
  7. ETOPOSIDE. [Suspect]
     Active Substance: ETOPOSIDE
     Indication: T-CELL LYMPHOMA
     Dosage: FOUR CYCLES OF VIPD
     Dates: start: 201410
  8. CHIDAMIDE [Suspect]
     Active Substance: TUCIDINOSTAT
     Indication: T-CELL LYMPHOMA
  9. METHOTREXATE. [Suspect]
     Active Substance: METHOTREXATE
     Indication: T-CELL LYMPHOMA
     Dates: start: 201410
  10. VINCRISTINE [Suspect]
     Active Substance: VINCRISTINE
     Indication: T-CELL LYMPHOMA
     Dosage: EPOCH 80% REGIMEN
  11. IFOSFAMIDE. [Suspect]
     Active Substance: IFOSFAMIDE
     Indication: T-CELL LYMPHOMA
     Dosage: FOUR CYCLES VIPD,??SWITCHED AGAIN TO EPOCH 80% REGIMEN.
     Dates: start: 201410
  12. CYCLOPHOSPHAMIDE/CYCLOPHOSPHAMIDE MONOHYDRATE [Suspect]
     Active Substance: CYCLOPHOSPHAMIDE
     Indication: T-CELL LYMPHOMA
     Dosage: EPOCH 80% REGIMEN
  13. GEMCITABINE/GEMCITABINE HYDROCHLORIDE [Suspect]
     Active Substance: GEMCITABINE\GEMCITABINE HYDROCHLORIDE
     Indication: T-CELL LYMPHOMA
     Dosage: P-GEMOX, ??PATIENT WAS SWITCHED AGAIN

REACTIONS (10)
  - Recurrent cancer [None]
  - Myalgia [None]
  - Blood uric acid increased [None]
  - Drug resistance [Unknown]
  - Arthralgia [None]
  - Infected skin ulcer [None]
  - Natural killer-cell lymphoblastic lymphoma [None]
  - Bone marrow failure [Unknown]
  - Chest discomfort [None]
  - Unevaluable event [None]
